FAERS Safety Report 5693198-9 (Version None)
Quarter: 2008Q2

REPORT INFORMATION
  Report Type: 
  Country: None (occurrence: None)
  Receive Date: 20080403
  Receipt Date: 20080331
  Transmission Date: 20081010
  Serious: Yes (Death)
  Sender: FDA-Public Use
  Company Number: JP-BRISTOL-MYERS SQUIBB COMPANY-13896410

PATIENT
  Age: 59 Year
  Sex: Male

DRUGS (2)
  1. TAXOL [Suspect]
     Indication: GASTRIC CANCER
     Dosage: THERAPY ATARTED FROM 18-JUL-2007
     Route: 041
     Dates: start: 20070725, end: 20070725
  2. TS-1 [Suspect]
     Indication: GASTRIC CANCER
     Route: 048
     Dates: start: 20070703, end: 20070730

REACTIONS (1)
  - INTERSTITIAL LUNG DISEASE [None]
